FAERS Safety Report 4761053-4 (Version None)
Quarter: 2005Q3

REPORT INFORMATION
  Report Type: 
  Country: None (occurrence: None)
  Receive Date: 20050901
  Receipt Date: 20050819
  Transmission Date: 20060218
  Serious: Yes (Death)
  Sender: FDA-Public Use
  Company Number: 2005117912

PATIENT
  Age: 76 Year
  Sex: Female

DRUGS (5)
  1. ZITHROMAX [Suspect]
     Indication: PNEUMONIA
     Dosage: INTRAVENOUS
     Route: 042
  2. ZITHROMAX [Suspect]
     Indication: PNEUMONIA
     Dosage: ORAL
     Route: 048
  3. LIPITOR [Concomitant]
  4. AVANDIA [Concomitant]
  5. ALL OTHER THERAPEUTIC PRODUCTS (ALL OTHER THERAPEUTIC PRODUCTS) [Concomitant]

REACTIONS (2)
  - HEPATIC FAILURE [None]
  - MULTI-ORGAN FAILURE [None]
